FAERS Safety Report 17272115 (Version 1)
Quarter: 2020Q1

REPORT INFORMATION
  Report Type: Spontaneous
  Country: US (occurrence: US)
  Receive Date: 20191223
  Receipt Date: 20191223
  Transmission Date: 20200409
  Serious: Yes (Death, Life-Threatening, Hospitalization)
  Sender: FDA-Public Use
  Company Number: None

PATIENT
  Age: 61 Year
  Sex: Female
  Weight: 68 kg

DRUGS (1)
  1. PALBOCICLIB (PALBOCICLIB 125MG CAP,ORAL) [Suspect]
     Active Substance: PALBOCICLIB
     Indication: BREAST CANCER
     Route: 048
     Dates: start: 20190226, end: 20190820

REACTIONS (14)
  - Leukopenia [None]
  - Back pain [None]
  - Urinary retention [None]
  - Nausea [None]
  - Dyspnoea [None]
  - Liver function test abnormal [None]
  - Hilar lymphadenopathy [None]
  - Pulmonary toxicity [None]
  - Metastatic pulmonary embolism [None]
  - Fatigue [None]
  - Asthenia [None]
  - Neutropenia [None]
  - Respiratory failure [None]
  - Pulmonary mass [None]

NARRATIVE: CASE EVENT DATE: 20190615
